FAERS Safety Report 10654339 (Version 1)
Quarter: 2014Q4

REPORT INFORMATION
  Report Type: Spontaneous
  Country: US (occurrence: None)
  Receive Date: 20141215
  Receipt Date: 20141215
  Transmission Date: 20150529
  Serious: Yes (Other)
  Sender: FDA-Public Use
  Company Number: None

PATIENT
  Age: 63 Year
  Sex: Female

DRUGS (15)
  1. VENLAFAXINE [Concomitant]
     Active Substance: VENLAFAXINE HYDROCHLORIDE
  2. ONE A DAY WOMEN^S [Concomitant]
     Active Substance: MINERALS\VITAMINS
  3. CLORAZEPATE [Concomitant]
     Active Substance: CLORAZEPATE DIPOTASSIUM
  4. HYDROCHLOROTHIAZIDE/LOSARTAN [Concomitant]
     Active Substance: HYDROCHLOROTHIAZIDE\LOSARTAN
  5. CITALOPRAM [Concomitant]
     Active Substance: CITALOPRAM HYDROBROMIDE
  6. BUPROPION [Concomitant]
     Active Substance: BUPROPION
  7. CARVEDILOL. [Concomitant]
     Active Substance: CARVEDILOL
  8. FENOFIBRATE. [Concomitant]
     Active Substance: FENOFIBRATE
  9. PIOGLITAZONE [Concomitant]
     Active Substance: PIOGLITAZONE
  10. BIOTIN [Concomitant]
     Active Substance: BIOTIN
  11. ASPIRIN. [Concomitant]
     Active Substance: ASPIRIN
  12. LANTUS [Suspect]
     Active Substance: INSULIN GLARGINE
  13. METFORMIN [Concomitant]
     Active Substance: METFORMIN HYDROCHLORIDE
  14. ATORVASTATIN [Concomitant]
     Active Substance: ATORVASTATIN
  15. POTASSIUM [Concomitant]
     Active Substance: POTASSIUM

REACTIONS (3)
  - Muscle spasms [None]
  - Back pain [None]
  - Headache [None]
